FAERS Safety Report 9502912 (Version 1)
Quarter: 2013Q3

REPORT INFORMATION
  Report Type: Report from Study
  Country: DE (occurrence: DE)
  Receive Date: 20130906
  Receipt Date: 20130906
  Transmission Date: 20140515
  Serious: Yes (Hospitalization)
  Sender: FDA-Public Use
  Company Number: PHHY2013DE097626

PATIENT
  Sex: Female

DRUGS (1)
  1. EXTAVIA [Suspect]
     Indication: MULTIPLE SCLEROSIS
     Dosage: 250 UG/ML, ONCE EVERY OTHER DAY
     Route: 058
     Dates: start: 20130517, end: 20130902

REACTIONS (1)
  - Crohn^s disease [Not Recovered/Not Resolved]
